FAERS Safety Report 4611621-5 (Version None)
Quarter: 2005Q2

REPORT INFORMATION
  Report Type: 
  Country: None (occurrence: None)
  Receive Date: 20050311
  Receipt Date: 20050112
  Transmission Date: 20051028
  Serious: No
  Sender: FDA-Public Use
  Company Number: 2005-BP-00569BP

PATIENT
  Sex: Female

DRUGS (10)
  1. SPIRIVA [Suspect]
     Indication: CHRONIC OBSTRUCTIVE PULMONARY DISEASE
     Dosage: 18  MCG (18 MCG, 1 IN 1 D), IH
     Route: 055
     Dates: start: 20040714
  2. SPIRIVA [Suspect]
     Indication: EMPHYSEMA
     Dosage: 18  MCG (18 MCG, 1 IN 1 D), IH
     Route: 055
     Dates: start: 20040714
  3. SPIRIVA [Suspect]
  4. FUROSEMIDE [Concomitant]
  5. SPIRONOLACTONE [Concomitant]
  6. VERAPAMIL ER (VERAPAMIL) [Concomitant]
  7. KLOR-CON [Concomitant]
  8. CHROMAGEN (CHROMAGEN) [Concomitant]
  9. NASCOBAL NASAL [Concomitant]
  10. ALBUTEROL [Concomitant]

REACTIONS (2)
  - DRUG INEFFECTIVE [None]
  - DYSPNOEA EXACERBATED [None]
